FAERS Safety Report 4908017-5 (Version None)
Quarter: 2006Q1

REPORT INFORMATION
  Report Type: 
  Country: None (occurrence: None)
  Receive Date: 20060210
  Receipt Date: 20060207
  Transmission Date: 20060701
  Serious: Yes (Hospitalization)
  Sender: FDA-Public Use
  Company Number: FR-GLAXOSMITHKLINE-B0409465A

PATIENT
  Age: 41 Year
  Sex: Male

DRUGS (4)
  1. AUGMENTIN '125' [Suspect]
     Route: 048
     Dates: start: 20051001, end: 20051028
  2. CORTANCYL [Concomitant]
     Route: 048
     Dates: start: 20051001, end: 20051028
  3. PARACETAMOL [Concomitant]
     Route: 048
     Dates: start: 20051001
  4. DEPAKENE [Concomitant]
     Dosage: 500MG PER DAY
     Route: 048
     Dates: end: 20051029

REACTIONS (6)
  - ABDOMINAL PAIN [None]
  - DIARRHOEA [None]
  - GASTROINTESTINAL INFLAMMATION [None]
  - NAUSEA [None]
  - VOMITING [None]
  - WEIGHT DECREASED [None]
